FAERS Safety Report 7998906-X (Version None)
Quarter: 2011Q4

REPORT INFORMATION
  Report Type: 
  Country: None (occurrence: None)
  Receive Date: 20111221
  Receipt Date: 20111219
  Transmission Date: 20120403
  Serious: Yes (Life-Threatening)
  Sender: FDA-Public Use
  Company Number: FR-VIIV HEALTHCARE LIMITED-B0758475A

PATIENT
  Sex: Male

DRUGS (2)
  1. EPZICOM [Suspect]
     Indication: HIV INFECTION
     Dosage: 600MG PER DAY
     Route: 064
     Dates: start: 20110504, end: 20110911
  2. KALETRA [Suspect]
     Indication: HIV INFECTION
     Dosage: 2UNIT PER DAY
     Route: 064
     Dates: start: 20110504, end: 20110911

REACTIONS (8)
  - TRACHEOMALACIA [None]
  - FOETAL EXPOSURE DURING PREGNANCY [None]
  - FOETAL CARDIAC DISORDER [None]
  - SALIVARY HYPERSECRETION [None]
  - COUGH [None]
  - OXYGEN SATURATION DECREASED [None]
  - OESOPHAGEAL ATRESIA [None]
  - LARYNGEAL DISORDER [None]
